FAERS Safety Report 4743638-4 (Version None)
Quarter: 2005Q3

REPORT INFORMATION
  Report Type: 
  Country: None (occurrence: None)
  Receive Date: 20050812
  Receipt Date: 20050801
  Transmission Date: 20060218
  Serious: Yes (Other)
  Sender: FDA-Public Use
  Company Number: HU-BRISTOL-MYERS SQUIBB COMPANY-13059837

PATIENT
  Age: 12 Year
  Sex: Female

DRUGS (2)
  1. CEFZIL [Suspect]
     Indication: TONSILLITIS
     Route: 048
     Dates: start: 20050310, end: 20050310
  2. CEFZIL [Suspect]
     Indication: BRONCHITIS
     Route: 048
     Dates: start: 20050310, end: 20050310

REACTIONS (2)
  - EYELID OEDEMA [None]
  - OEDEMA MOUTH [None]
